FAERS Safety Report 14237787 (Version 1)
Quarter: 2017Q4

REPORT INFORMATION
  Report Type: Report from Study
  Country: BR (occurrence: BR)
  Receive Date: 20171130
  Receipt Date: 20171130
  Transmission Date: 20180321
  Serious: Yes (Hospitalization, Other)
  Sender: FDA-Public Use
  Company Number: BR-BRISTOL-MYERS SQUIBB COMPANY-BMS-2017-104658

PATIENT
  Age: 70 Year
  Sex: Female

DRUGS (13)
  1. OMEPRAZOLE. [Concomitant]
     Active Substance: OMEPRAZOLE
     Indication: PROPHYLAXIS OF NAUSEA AND VOMITING
     Dosage: 20 MG, UNK
     Route: 052
     Dates: start: 20170726
  2. VELIPARIB [Suspect]
     Active Substance: VELIPARIB
     Indication: NEOPLASM
     Dosage: UNK
     Route: 048
     Dates: start: 20170627, end: 20170706
  3. OMEPRAZOLE. [Concomitant]
     Active Substance: OMEPRAZOLE
     Indication: VOMITING
     Dosage: 40 MG, QD
     Route: 042
     Dates: start: 20170707, end: 20170725
  4. CARBOPLATIN. [Suspect]
     Active Substance: CARBOPLATIN
     Indication: NEOPLASM
     Dosage: UNK
     Route: 042
     Dates: start: 20170627, end: 20170627
  5. VELIPARIB [Suspect]
     Active Substance: VELIPARIB
     Indication: PRODUCT USED FOR UNKNOWN INDICATION
     Dosage: UNK
     Route: 048
     Dates: start: 20170725
  6. SIMVASTATIN. [Concomitant]
     Active Substance: SIMVASTATIN
     Indication: HYPERCHOLESTEROLAEMIA
     Route: 048
  7. TAZOBACTAM [Concomitant]
     Active Substance: TAZOBACTAM
     Indication: CHEST PAIN
     Dosage: 0.5 G, QD
     Route: 048
     Dates: start: 20170820
  8. CARBOPLATIN. [Suspect]
     Active Substance: CARBOPLATIN
     Indication: PRODUCT USED FOR UNKNOWN INDICATION
     Dosage: UNK
     Route: 042
     Dates: start: 20170725
  9. PACLITAXEL. [Suspect]
     Active Substance: PACLITAXEL
     Indication: NEOPLASM
     Dosage: 175 MG/ML, UNK
     Route: 042
     Dates: start: 20170627
  10. WARFARIN SODIUM. [Suspect]
     Active Substance: WARFARIN SODIUM
     Indication: ATRIAL FIBRILLATION
     Route: 065
  11. LEVOTHYROXINE. [Concomitant]
     Active Substance: LEVOTHYROXINE
     Indication: HYPOTHYROIDISM
     Route: 048
  12. PREDNISONE. [Concomitant]
     Active Substance: PREDNISONE
     Indication: HYPONATRAEMIA
     Dosage: 5 MG, UNK
     Route: 048
     Dates: start: 20170820, end: 20170912
  13. CARVEDILOL. [Concomitant]
     Active Substance: CARVEDILOL
     Indication: HYPERTENSION
     Dosage: UNK
     Route: 048
     Dates: start: 2007

REACTIONS (4)
  - Pneumonia [Recovered/Resolved]
  - International normalised ratio increased [Recovered/Resolved]
  - Anaemia [Recovered/Resolved]
  - Pulmonary embolism [Not Recovered/Not Resolved]

NARRATIVE: CASE EVENT DATE: 20170821
